FAERS Safety Report 9392205 (Version 1)
Quarter: 2013Q3

REPORT INFORMATION
  Report Type: Spontaneous
  Country: US (occurrence: US)
  Receive Date: 20130710
  Receipt Date: 20130710
  Transmission Date: 20140515
  Serious: No
  Sender: FDA-Public Use
  Company Number: US-B.I. PHARMACEUTICALS,INC./RIDGEFIELD-2013-BI-19663BP

PATIENT
  Age: 75 Year
  Sex: Female

DRUGS (5)
  1. PRADAXA [Suspect]
     Indication: ATRIAL FIBRILLATION
     Dosage: 300 MG
     Route: 048
     Dates: start: 20130701, end: 20130704
  2. RYTHMOL [Concomitant]
     Dosage: 225 MG
     Route: 048
  3. VITAMINS [Concomitant]
     Route: 048
  4. DIOVAN HCT [Concomitant]
     Dosage: STRENGTH: 160/12.5; DAILY DOSE: 160/12.5
     Route: 048
  5. LIPITOR [Concomitant]
     Dosage: 20 MG
     Route: 048

REACTIONS (5)
  - Dizziness [Recovered/Resolved]
  - Dyspnoea [Recovered/Resolved]
  - Sputum discoloured [Recovered/Resolved]
  - Chest discomfort [Recovered/Resolved]
  - Tension headache [Not Recovered/Not Resolved]
